FAERS Safety Report 5730656-2 (Version None)
Quarter: 2008Q2

REPORT INFORMATION
  Report Type: 
  Country: None (occurrence: None)
  Receive Date: 20080507
  Receipt Date: 20080320
  Transmission Date: 20081010
  Serious: Yes (Hospitalization)
  Sender: FDA-Public Use
  Company Number: US-ASTRAZENECA-2008UW05970

PATIENT
  Age: 75 Year
  Sex: Female

DRUGS (1)
  1. SEROQUEL [Suspect]
     Route: 048

REACTIONS (1)
  - PANCYTOPENIA [None]
